FAERS Safety Report 7653835-6 (Version None)
Quarter: 2011Q3

REPORT INFORMATION
  Report Type: 
  Country: None (occurrence: None)
  Receive Date: 20110803
  Receipt Date: 20110720
  Transmission Date: 20111222
  Serious: No
  Sender: FDA-Public Use
  Company Number: US-B.I. PHARMACEUTICALS,INC./RIDGEFIELD-2011-BP-12226BP

PATIENT
  Sex: Male

DRUGS (21)
  1. BONIVA [Concomitant]
     Indication: OSTEOPOROSIS
  2. ALOE VERA [Concomitant]
     Indication: CONSTIPATION
     Route: 048
  3. ALOE VERA [Concomitant]
     Indication: FAECES HARD
  4. PRADAXA [Suspect]
     Indication: ATRIAL FIBRILLATION
     Dosage: 300 MG
     Route: 048
     Dates: start: 20110315
  5. LIPITOR [Concomitant]
     Indication: BLOOD CHOLESTEROL INCREASED
     Dosage: 10 MG
     Route: 048
  6. OMEPRAZOLE [Concomitant]
     Indication: GASTROOESOPHAGEAL REFLUX DISEASE
     Dosage: 20 MG
     Route: 048
  7. PROBIOTIC [Concomitant]
     Indication: PROPHYLAXIS
     Route: 048
     Dates: start: 20100101
  8. AMLODIPINE [Concomitant]
     Indication: HYPERTENSION
     Dosage: 2.5 MG
     Route: 048
     Dates: start: 20100101
  9. CENTRUM SILVER [Concomitant]
     Indication: VITAMIN SUPPLEMENTATION
     Route: 048
  10. BONIVA [Concomitant]
     Indication: BONE LOSS
     Route: 048
  11. DIGOXIN [Concomitant]
     Indication: ATRIAL FIBRILLATION
     Dosage: 250 MCG
     Route: 048
     Dates: start: 20110601
  12. METOPROLOL TARTRATE [Concomitant]
     Indication: ATRIAL FIBRILLATION
     Dosage: 50 MG
     Route: 048
     Dates: start: 20110601
  13. COZAAR [Concomitant]
     Indication: HYPERTENSION
     Dosage: 25 MG
     Route: 048
  14. VALIUM [Concomitant]
     Indication: INSOMNIA
     Dosage: 3.5 MG
     Route: 048
     Dates: start: 20010101
  15. AMIODARONE HCL [Concomitant]
     Indication: ATRIAL FIBRILLATION
  16. TYLENOL-500 [Concomitant]
     Indication: BACK PAIN
     Dosage: 650 MG
     Route: 048
  17. COLACE [Concomitant]
     Indication: FAECES HARD
  18. AMIODARONE HCL [Concomitant]
     Indication: ARRHYTHMIA
     Dosage: 200 MG
     Route: 048
     Dates: start: 20110718
  19. FISH OIL [Concomitant]
     Indication: BLOOD CHOLESTEROL INCREASED
     Route: 048
  20. PROBIOTIC [Concomitant]
     Indication: GASTROENTERITIS RADIATION
  21. COLACE [Concomitant]
     Indication: CONSTIPATION
     Dosage: 100 MG
     Route: 048

REACTIONS (3)
  - OEDEMA PERIPHERAL [None]
  - ABDOMINAL PAIN UPPER [None]
  - RASH MACULAR [None]
